FAERS Safety Report 6393612-X (Version None)
Quarter: 2009Q4

REPORT INFORMATION
  Report Type: 
  Country: None (occurrence: None)
  Receive Date: 20091008
  Receipt Date: 20090924
  Transmission Date: 20100525
  Serious: Yes (Other)
  Sender: FDA-Public Use
  Company Number: GB-PFIZER INC-2009273937

PATIENT

DRUGS (1)
  1. NEURONTIN [Suspect]
     Indication: ANALGESIC THERAPY
     Route: 048

REACTIONS (2)
  - DYSPHAGIA [None]
  - OESOPHAGEAL CARCINOMA [None]
